FAERS Safety Report 9365362 (Version 1)
Quarter: 2013Q2

REPORT INFORMATION
  Report Type: Spontaneous
  Country: CN (occurrence: CN)
  Receive Date: 20130625
  Receipt Date: 20130625
  Transmission Date: 20140414
  Serious: Yes (Other)
  Sender: FDA-Public Use
  Company Number: CN-009507513-1306CHN010837

PATIENT
  Age: 30 Year
  Sex: Male
  Weight: 78 kg

DRUGS (1)
  1. LORATADINE [Suspect]
     Indication: URTICARIA
     Dosage: 1 DF, TID
     Route: 048
     Dates: start: 20121006, end: 20121007

REACTIONS (2)
  - Chest discomfort [Recovered/Resolved]
  - Vomiting [Recovered/Resolved]
